FAERS Safety Report 17316959 (Version 2)
Quarter: 2020Q1

REPORT INFORMATION
  Report Type: Spontaneous
  Country: JP (occurrence: JP)
  Receive Date: 20200124
  Receipt Date: 20200128
  Transmission Date: 20200409
  Serious: Yes (Other)
  Sender: FDA-Public Use
  Company Number: JP-ASTRAZENECA-2020SE11135

PATIENT
  Sex: Female

DRUGS (4)
  1. LYNPARZA [Suspect]
     Active Substance: OLAPARIB
     Indication: OVARIAN CANCER
     Dosage: NUMBER OF SEPARATE DOSAGES UNKNOWN
     Route: 048
     Dates: start: 20180613, end: 20180821
  2. FOLIAMIN [Concomitant]
     Active Substance: FOLIC ACID
     Indication: OVARIAN CANCER
     Dosage: DOSE UNKNOWN
     Route: 065
     Dates: start: 20180912, end: 20181225
  3. LYNPARZA [Suspect]
     Active Substance: OLAPARIB
     Indication: OVARIAN CANCER
     Dosage: NUMBER OF SEPARATE DOSAGES UNKNOWN
     Route: 048
     Dates: start: 20180912
  4. NINJIN^YOEITO [Concomitant]
     Active Substance: HERBALS
     Indication: OVARIAN CANCER
     Dosage: DOSE UNKNOWN
     Route: 065
     Dates: start: 20180912, end: 20181106

REACTIONS (1)
  - Anaemia [Recovering/Resolving]

NARRATIVE: CASE EVENT DATE: 20180822
